FAERS Safety Report 11826332 (Version 2)
Quarter: 2015Q4

REPORT INFORMATION
  Report Type: Spontaneous
  Country: US (occurrence: US)
  Receive Date: 20151211
  Receipt Date: 20151216
  Transmission Date: 20160305
  Serious: Yes (Other)
  Sender: FDA-Public Use
  Company Number: US-PFIZER INC-2015416836

PATIENT
  Age: 56 Year
  Sex: Male

DRUGS (1)
  1. SUTENT [Suspect]
     Active Substance: SUNITINIB MALATE
     Indication: MALIGNANT URINARY TRACT NEOPLASM
     Dosage: 50 MG, 1X/DAY (EVERY DAY FOR 28 DAYS)
     Route: 048
     Dates: start: 20151118

REACTIONS (11)
  - Vomiting [Unknown]
  - Chromaturia [Unknown]
  - Blood pressure increased [Unknown]
  - Asthenia [Unknown]
  - Liver disorder [Unknown]
  - Cold sweat [Unknown]
  - Nausea [Unknown]
  - Constipation [Unknown]
  - Diarrhoea [Unknown]
  - Loss of consciousness [Unknown]
  - Yellow skin [Unknown]

NARRATIVE: CASE EVENT DATE: 20151203
